FAERS Safety Report 8069395-4 (Version None)
Quarter: 2011Q4

REPORT INFORMATION
  Report Type: 
  Country: None (occurrence: None)
  Receive Date: 20111221
  Receipt Date: 20110505
  Transmission Date: 20120403
  Serious: Yes (Other)
  Sender: FDA-Public Use
  Company Number: PHHY2011US03985

PATIENT
  Age: 63 Year
  Sex: Female
  Weight: 79.8 kg

DRUGS (1)
  1. EXJADE [Suspect]
     Indication: NEOPLASM
     Dosage: 2000 MG, QD, ORAL
     Route: 048
     Dates: start: 20060605, end: 20110101

REACTIONS (1)
  - NEOPLASM MALIGNANT [None]
